FAERS Safety Report 7113274-3 (Version None)
Quarter: 2010Q4

REPORT INFORMATION
  Report Type: 
  Country: None (occurrence: None)
  Receive Date: 20101119
  Receipt Date: 20100521
  Transmission Date: 20110411
  Serious: No
  Sender: FDA-Public Use
  Company Number: A0862067A

PATIENT
  Age: 74 Year
  Sex: Male

DRUGS (1)
  1. BUPROPION HYDROCHLORIDE [Suspect]
     Indication: DEPRESSION
     Dosage: 100MG TWICE PER DAY
     Route: 048
     Dates: start: 20100501

REACTIONS (2)
  - ABDOMINAL PAIN UPPER [None]
  - THERAPEUTIC RESPONSE DECREASED [None]
